FAERS Safety Report 8122455-1 (Version None)
Quarter: 2012Q1

REPORT INFORMATION
  Report Type: 
  Country: None (occurrence: None)
  Receive Date: 20120207
  Receipt Date: 20120207
  Transmission Date: 20120608
  Serious: Yes (Life-Threatening, Other)
  Sender: FDA-Public Use
  Company Number: None

PATIENT
  Sex: Female
  Weight: 55.7924 kg

DRUGS (1)
  1. SYNTHROID [Suspect]
     Indication: HYPOTHYROIDISM
     Dosage: 88MCG ONE DAILY MOUTH
     Route: 048
     Dates: start: 20120131, end: 20120202

REACTIONS (4)
  - PRODUCT TAMPERING [None]
  - PRODUCT SUBSTITUTION ISSUE [None]
  - HEART RATE INCREASED [None]
  - PALPITATIONS [None]
